FAERS Safety Report 9893338 (Version 4)
Quarter: 2015Q1

REPORT INFORMATION
  Report Type: Spontaneous
  Country: US (occurrence: US)
  Receive Date: 20140213
  Receipt Date: 20150122
  Transmission Date: 20150721
  Serious: Yes (Death, Life-Threatening, Hospitalization, Other)
  Sender: FDA-Public Use
  Company Number: US-009507513-1402USA005722

PATIENT
  Sex: Male
  Weight: 76.64 kg

DRUGS (1)
  1. JANUVIA [Suspect]
     Active Substance: SITAGLIPTIN PHOSPHATE
     Indication: TYPE 2 DIABETES MELLITUS
     Dosage: 100 MG, QD
     Route: 048
     Dates: start: 20071221, end: 20120727

REACTIONS (29)
  - Biopsy breast [Unknown]
  - Pancreatic pseudocyst [Unknown]
  - Portal hypertension [Unknown]
  - Varices oesophageal [Unknown]
  - Breast pain [Unknown]
  - Arthritis [Unknown]
  - Hypertension [Unknown]
  - Splenic vein thrombosis [Unknown]
  - Gastric varices [Unknown]
  - Sleep disorder [Unknown]
  - Thrombosis [Unknown]
  - Portal vein thrombosis [Unknown]
  - Mesenteric vein thrombosis [Unknown]
  - Gastrointestinal neoplasm [Unknown]
  - Breast mass [Unknown]
  - Haematochezia [Unknown]
  - Flatulence [Unknown]
  - Biliary dilatation [Unknown]
  - Muscle spasms [Unknown]
  - Pancreatic carcinoma [Fatal]
  - Hepatic cirrhosis [Unknown]
  - Liver disorder [Unknown]
  - Polyuria [Unknown]
  - Melaena [Unknown]
  - Diarrhoea [Unknown]
  - Metastatic neoplasm [Fatal]
  - Hyperalbuminaemia [Unknown]
  - Anxiety disorder [Unknown]
  - Gout [Unknown]

NARRATIVE: CASE EVENT DATE: 20120229
